FAERS Safety Report 14764983 (Version 1)
Quarter: 2018Q2

REPORT INFORMATION
  Report Type: Spontaneous
  Country: SK (occurrence: SK)
  Receive Date: 20180416
  Receipt Date: 20180416
  Transmission Date: 20180711
  Serious: Yes (Other)
  Sender: FDA-Public Use
  Company Number: SK-GLAXOSMITHKLINE-SK2018GSK062396

PATIENT
  Sex: Female

DRUGS (2)
  1. IPRATROPIUM [Suspect]
     Active Substance: IPRATROPIUM
     Indication: ASTHMA
     Dosage: UNK UNK, PRN
     Route: 055
     Dates: start: 201512
  2. RELVAR ELLIPTA [Suspect]
     Active Substance: FLUTICASONE FUROATE\VILANTEROL TRIFENATATE
     Indication: ASTHMA
     Dosage: UNK, 1D
     Route: 055
     Dates: start: 201512

REACTIONS (2)
  - Asthma [Recovered/Resolved]
  - Chlamydia test positive [Recovered/Resolved]

NARRATIVE: CASE EVENT DATE: 2017
